FAERS Safety Report 5773008-1 (Version None)
Quarter: 2008Q2

REPORT INFORMATION
  Report Type: 
  Country: None (occurrence: None)
  Receive Date: 20080613
  Receipt Date: 20080606
  Transmission Date: 20081010
  Serious: Yes (Other)
  Sender: FDA-Public Use
  Company Number: GB-PFIZER INC-2008048414

PATIENT
  Age: 46 Year
  Sex: Female

DRUGS (7)
  1. CHANTIX [Suspect]
     Indication: SMOKING CESSATION THERAPY
     Route: 048
     Dates: start: 20080408, end: 20080429
  2. BACLOFEN [Concomitant]
     Route: 048
  3. CEPHALEXIN [Concomitant]
     Route: 048
     Dates: start: 20061116
  4. DETRUNORM [Concomitant]
     Route: 048
     Dates: start: 20030207
  5. DIAZEPAM [Concomitant]
     Route: 048
     Dates: start: 20080125
  6. DIHYDROCODEINE [Concomitant]
     Route: 048
     Dates: start: 20080331
  7. STUGERON [Concomitant]
     Route: 048
     Dates: start: 20030919

REACTIONS (1)
  - MULTIPLE SCLEROSIS [None]
